FAERS Safety Report 6745839-2 (Version None)
Quarter: 2010Q2

REPORT INFORMATION
  Report Type: 
  Country: None (occurrence: None)
  Receive Date: 20100526
  Receipt Date: 20100511
  Transmission Date: 20101027
  Serious: Yes (Other)
  Sender: FDA-Public Use
  Company Number: B0656553A

PATIENT
  Age: 36 Year
  Sex: Female

DRUGS (3)
  1. SUMATRIPTAN SUCCINATE [Suspect]
     Indication: MIGRAINE
     Dosage: 100 MG
  2. ORAL CONTRACEPTIVE (ORAL CONTRACEPTIVE) (FORMULATION UNKNOWN) [Suspect]
     Dosage: ORAL
     Route: 048
  3. CITALOPRAM HYDROBROMIDE [Suspect]

REACTIONS (5)
  - COLITIS ISCHAEMIC [None]
  - HYPERCOAGULATION [None]
  - INCORRECT DOSE ADMINISTERED [None]
  - MIGRAINE [None]
  - TACHYCARDIA [None]
